FAERS Safety Report 6983951 (Version 3)
Quarter: 2014Q1

REPORT INFORMATION
  Report Type: Spontaneous
  Country: US (occurrence: US)
  Receive Date: 20090501
  Receipt Date: 20140307
  Transmission Date: 20141002
  Serious: Yes (Death, Hospitalization, Other)
  Sender: FDA-Public Use
  Company Number: US-ALEXION-A200700003

PATIENT
  Sex: 0

DRUGS (10)
  1. SOLIRIS [Suspect]
     Indication: PAROXYSMAL NOCTURNAL HAEMOGLOBINURIA
     Dosage: 600 MG, SINGLE
     Route: 042
     Dates: start: 20070417, end: 20070417
  2. BACTRIM [Suspect]
     Indication: PROPHYLAXIS
     Dosage: 1 DS, BID ON MONDAYS AND THURSDAYS
     Route: 048
     Dates: start: 20070313, end: 20070421
  3. PREDNISONE [Suspect]
     Indication: HAEMOLYSIS
  4. PANTOPRAZOLE [Concomitant]
  5. LEVOTHYROXINE [Concomitant]
  6. DARBEPOETIN ALFA [Concomitant]
  7. FOLATE [Concomitant]
  8. VITAMINA B 12 [Concomitant]
  9. CALCIUM WITH VITAMIN D /00944201/ [Concomitant]
  10. AMINOCAPROIC ACID [Concomitant]

REACTIONS (11)
  - Dermatitis bullous [Recovering/Resolving]
  - Cryptococcosis [Fatal]
  - Meningitis cryptococcal [Fatal]
  - Renal failure acute [Recovered/Resolved]
  - Confusional state [Recovered/Resolved]
  - Pulmonary embolism [Unknown]
  - Deep vein thrombosis [Unknown]
  - Ammonia increased [Recovered/Resolved]
  - Neutropenia [Recovered/Resolved]
  - Headache [Recovered/Resolved]
  - Eosinophil count increased [Unknown]
